FAERS Safety Report 22108233 (Version 1)
Quarter: 2023Q1

REPORT INFORMATION
  Report Type: Spontaneous
  Country: CN (occurrence: None)
  Receive Date: 20230317
  Receipt Date: 20230317
  Transmission Date: 20230417
  Serious: Yes (Death)
  Sender: FDA-Public Use
  Company Number: 2023A030652

PATIENT
  Age: 68 Year
  Sex: Male

DRUGS (1)
  1. BUDESONIDE\FORMOTEROL\GLYCOPYRRONIUM [Suspect]
     Active Substance: BUDESONIDE\FORMOTEROL\GLYCOPYRRONIUM
     Indication: Chronic obstructive pulmonary disease
     Dosage: TWO OR THREE TIMES A DAY, TWO SPRAYS EACH TIME, AND LATER IT MIGHT BE MORE THAN TWO SPRAYS EACH T...
     Route: 055

REACTIONS (3)
  - Death [Fatal]
  - Device effect decreased [Not Recovered/Not Resolved]
  - Wrong technique in device usage process [Unknown]
